FAERS Safety Report 6546841-6 (Version None)
Quarter: 2010Q1

REPORT INFORMATION
  Report Type: 
  Country: None (occurrence: None)
  Receive Date: 20100119
  Receipt Date: 20100112
  Transmission Date: 20100710
  Serious: Yes (Hospitalization)
  Sender: FDA-Public Use
  Company Number: TPA2010A00029

PATIENT
  Age: 79 Year
  Sex: Female
  Weight: 72.5755 kg

DRUGS (5)
  1. PREVACID [Suspect]
     Indication: DYSPEPSIA
     Dosage: 30 MG, 2 IN 1 D, PER ORAL
     Route: 048
  2. LISINOPRIL [Concomitant]
  3. LEVOTHYROXINE SODIUM [Concomitant]
  4. METOPROLOL (METOPROLOL) [Concomitant]
  5. ASPIRIN [Concomitant]

REACTIONS (6)
  - ATRIAL FIBRILLATION [None]
  - CHEST PAIN [None]
  - EJECTION FRACTION DECREASED [None]
  - HEADACHE [None]
  - PAIN IN EXTREMITY [None]
  - TACHYCARDIA [None]
